FAERS Safety Report 10330193 (Version 2)
Quarter: 2014Q3

REPORT INFORMATION
  Report Type: Report from Study
  Country: US (occurrence: US)
  Receive Date: 20140721
  Receipt Date: 20140728
  Transmission Date: 20150326
  Serious: Yes (Hospitalization)
  Sender: FDA-Public Use
  Company Number: US-TAKEDA-2014MPI001961

PATIENT
  Age: 59 Year
  Sex: Female
  Weight: 133.5 kg

DRUGS (17)
  1. CYMBALTA [Concomitant]
     Active Substance: DULOXETINE HYDROCHLORIDE
  2. LORAZEPAM. [Concomitant]
     Active Substance: LORAZEPAM
  3. METOPROLOL SUCCINATE. [Concomitant]
     Active Substance: METOPROLOL SUCCINATE
  4. PRAVASTATIN [Concomitant]
     Active Substance: PRAVASTATIN\PRAVASTATIN SODIUM
  5. RECLAST [Concomitant]
     Active Substance: ZOLEDRONIC ACID
  6. LOSARTAN [Concomitant]
     Active Substance: LOSARTAN
  7. ASPIRIN. [Concomitant]
     Active Substance: ASPIRIN
     Dosage: 3.1 MG, UNK
     Route: 042
     Dates: end: 20140710
  8. FUROSEMIDE. [Concomitant]
     Active Substance: FUROSEMIDE
  9. PHENERGAN [Concomitant]
     Active Substance: PROMETHAZINE HYDROCHLORIDE
  10. LEVOTHYROXINE [Concomitant]
     Active Substance: LEVOTHYROXINE
  11. METFORMIN [Concomitant]
     Active Substance: METFORMIN HYDROCHLORIDE
  12. VELCADE [Suspect]
     Active Substance: BORTEZOMIB
     Indication: PLASMA CELL MYELOMA
     Dosage: 3.1 MG, ON DAY 1, 4,
     Route: 042
     Dates: end: 20140711
  13. LENALIDOMIDE [Suspect]
     Active Substance: LENALIDOMIDE
     Indication: PLASMA CELL MYELOMA
     Dosage: 20 MG, ON DAY 1, 2, 3, 4, 5, 6
     Route: 048
     Dates: end: 20140713
  14. NEXIUM [Concomitant]
     Active Substance: ESOMEPRAZOLE MAGNESIUM
  15. OXYBUTYNIN [Concomitant]
     Active Substance: OXYBUTYNIN
  16. DEXAMETHASONE. [Suspect]
     Active Substance: DEXAMETHASONE
     Indication: PLASMA CELL MYELOMA
     Dosage: ON DAY 1, 2, 4, 5
     Route: 048
     Dates: end: 20140712
  17. AMLODIPINE [Concomitant]
     Active Substance: AMLODIPINE BESYLATE

REACTIONS (1)
  - Epiglottitis [Unknown]

NARRATIVE: CASE EVENT DATE: 20140714
